FAERS Safety Report 5971189-8 (Version None)
Quarter: 2008Q4

REPORT INFORMATION
  Report Type: 
  Country: None (occurrence: None)
  Receive Date: 20081128
  Receipt Date: 20081128
  Transmission Date: 20090506
  Serious: Yes (Hospitalization)
  Sender: FDA-Public Use
  Company Number: NL-JNJFOC-20081104968

PATIENT
  Sex: Female

DRUGS (3)
  1. TMC125 [Suspect]
  2. TMC125 [Suspect]
     Indication: HIV INFECTION
  3. FUROSEMIDE [Suspect]
     Indication: DRUG USE FOR UNKNOWN INDICATION

REACTIONS (1)
  - ORTHOSTATIC HYPOTENSION [None]
